FAERS Safety Report 7512623-1 (Version None)
Quarter: 2011Q2

REPORT INFORMATION
  Report Type: 
  Country: None (occurrence: None)
  Receive Date: 20110531
  Receipt Date: 20110526
  Transmission Date: 20111010
  Serious: Yes (Other)
  Sender: FDA-Public Use
  Company Number: GR-ROCHE-779555

PATIENT
  Age: 59 Year
  Sex: Female

DRUGS (2)
  1. RABEPRAZOLE SODIUM [Suspect]
     Indication: PROPHYLAXIS
     Route: 065
  2. XELODA [Suspect]
     Indication: BREAST CANCER
     Dosage: 4X500 MG+3X500 MG
     Route: 048
     Dates: start: 20110523, end: 20110523

REACTIONS (3)
  - RETINAL TEAR [None]
  - RETINAL HAEMORRHAGE [None]
  - VITREOUS DETACHMENT [None]
